FAERS Safety Report 9423492 (Version 4)
Quarter: 2014Q2

REPORT INFORMATION
  Report Type: Spontaneous
  Country: US (occurrence: US)
  Receive Date: 20130726
  Receipt Date: 20140527
  Transmission Date: 20141212
  Serious: Yes (Hospitalization, Other)
  Sender: FDA-Public Use
  Company Number: US-UCBSA-092367

PATIENT
  Sex: Female
  Weight: 147.4 kg

DRUGS (3)
  1. KEPPRA XR [Suspect]
     Indication: CONVULSION
     Dosage: 500 MG STRENGTH; 2 TABLETS IN THE MORNING AND 2 IN THE EVENING
     Dates: start: 2012
  2. KEPPRA XR [Suspect]
     Indication: CONVULSION
  3. TYLENOL PM [Concomitant]

REACTIONS (8)
  - Surgery [Unknown]
  - Convulsion [Recovering/Resolving]
  - Stress [Unknown]
  - Hallucination, auditory [Unknown]
  - Generalised tonic-clonic seizure [Unknown]
  - Staring [Unknown]
  - Back pain [Unknown]
  - Inappropriate schedule of drug administration [Unknown]
